FAERS Safety Report 15624806 (Version 2)
Quarter: 2018Q4

REPORT INFORMATION
  Report Type: Spontaneous
  Country: FR (occurrence: FR)
  Receive Date: 20181116
  Receipt Date: 20181128
  Transmission Date: 20190205
  Serious: Yes (Other)
  Sender: FDA-Public Use
  Company Number: PHHY2018FR155447

PATIENT
  Age: 39 Year
  Sex: Female

DRUGS (9)
  1. AOTAL [Suspect]
     Active Substance: ACAMPROSATE CALCIUM
     Dosage: 333 MG,QID
     Route: 048
  2. LYRICA [Suspect]
     Active Substance: PREGABALIN
     Indication: EPILEPSY
     Dosage: 150 MG, QD (12 HOUR)
     Route: 048
     Dates: end: 20121115
  3. REVIA [Suspect]
     Active Substance: NALTREXONE HYDROCHLORIDE
     Indication: ALCOHOLISM
     Dosage: 50 MG, QD (1 TRIMESTER)
     Route: 048
     Dates: end: 20121115
  4. TAHOR [Suspect]
     Active Substance: ATORVASTATIN CALCIUM
     Indication: DYSLIPIDAEMIA
     Dosage: 20 MG, QD
     Route: 048
     Dates: end: 20121115
  5. ALCOHOL. [Suspect]
     Active Substance: ALCOHOL
     Indication: PRODUCT USED FOR UNKNOWN INDICATION
     Route: 065
  6. LOXEN [NICARDIPINE HYDROCHLORIDE] [Suspect]
     Active Substance: NICARDIPINE HYDROCHLORIDE
     Indication: HYPERTENSION
     Dosage: UNK
     Route: 048
  7. REVIA [Suspect]
     Active Substance: NALTREXONE HYDROCHLORIDE
     Dosage: 50 MG,QD
     Route: 048
  8. IRBESARTAN+HYDROCHLOROTHIAZIDE [Suspect]
     Active Substance: HYDROCHLOROTHIAZIDE\IRBESARTAN
     Indication: HYPERTENSION
     Dosage: UNK
     Route: 048
  9. AOTAL [Suspect]
     Active Substance: ACAMPROSATE CALCIUM
     Indication: ALCOHOLISM
     Dosage: 333 MG, QD
     Route: 048

REACTIONS (2)
  - Maternal exposure during pregnancy [Recovered/Resolved]
  - Alcohol poisoning [Unknown]

NARRATIVE: CASE EVENT DATE: 20121015
